FAERS Safety Report 4430736-8 (Version None)
Quarter: 2004Q3

REPORT INFORMATION
  Report Type: 
  Country: None (occurrence: None)
  Receive Date: 20040819
  Receipt Date: 20040819
  Transmission Date: 20050211
  Serious: No
  Sender: FDA-Public Use
  Company Number: None

PATIENT
  Age: 28 Year
  Sex: Male
  Weight: 97.5234 kg

DRUGS (2)
  1. EFFEXOR XR [Suspect]
     Indication: DEPRESSION
     Dosage: 1 QD ORAL
     Route: 048
     Dates: start: 20020801, end: 20040806
  2. PROVIGIL [Suspect]
     Indication: NARCOLEPSY
     Dosage: 1/2 QD ORAL
     Route: 048
     Dates: start: 20030801, end: 20040818

REACTIONS (2)
  - DIZZINESS [None]
  - HEART RATE INCREASED [None]
